FAERS Safety Report 8182443 (Version 2)
Quarter: 2012Q4

REPORT INFORMATION
  Report Type: Report from Study
  Country: FR (occurrence: FR)
  Receive Date: 20111015
  Receipt Date: 20121017
  Transmission Date: 20130627
  Serious: Yes (Life-Threatening)
  Sender: FDA-Public Use
  Company Number: FR-ROCHE-1000798

PATIENT
  Age: 57 Year
  Sex: Male

DRUGS (6)
  1. BEVACIZUMAB [Suspect]
     Indication: COLON CANCER
     Route: 042
     Dates: start: 20110104
  2. BEVACIZUMAB [Suspect]
     Dosage: Last dose prior to onset of SAE: 17/Aug/2011
     Route: 042
     Dates: start: 20110817
  3. IRINOTECAN [Suspect]
     Indication: COLON CANCER
     Dosage: Last dose prior to onset of SAE: 13/Apr/2011
     Route: 042
     Dates: start: 20110104, end: 20110608
  4. CALCIUM FOLINATE [Suspect]
     Indication: COLON CANCER
     Dosage: Last dose prior to onset of SAE: 13/Apr/2011
     Route: 042
     Dates: end: 20110608
  5. FLUOROURACIL [Suspect]
     Indication: COLON CANCER
     Dosage: Last dose prior to onset of SAE: 13/Apr/2011
     Route: 040
     Dates: start: 20110104, end: 20110608
  6. FLUOROURACIL [Suspect]
     Indication: COLON CANCER
     Dosage: Continuous; Last dose of prior to SAE: 4800 mg ; On 13/Apr/2011
     Route: 042
     Dates: end: 20110608

REACTIONS (1)
  - Acute lymphocytic leukaemia [Not Recovered/Not Resolved]
